FAERS Safety Report 7953206-9 (Version None)
Quarter: 2011Q4

REPORT INFORMATION
  Report Type: 
  Country: None (occurrence: None)
  Receive Date: 20111201
  Receipt Date: 20111122
  Transmission Date: 20120403
  Serious: Yes (Other)
  Sender: FDA-Public Use
  Company Number: US-ASTRAZENECA-2011SE49496

PATIENT
  Age: 73 Year
  Sex: Female

DRUGS (7)
  1. SYMBICORT [Suspect]
     Indication: ASTHMA
     Dosage: 160/4.5 MCG ONE PUFF TWO TIMES A DAY
     Route: 055
     Dates: start: 20080101
  2. NEXIUM [Suspect]
     Route: 048
  3. ADVAIR DISKUS 100/50 [Concomitant]
  4. NEBULIZER [Concomitant]
  5. DUONEB [Concomitant]
  6. ALLEGRA [Concomitant]
  7. COMBIVENT [Concomitant]

REACTIONS (7)
  - EAR INFECTION [None]
  - SYNCOPE [None]
  - DYSPNOEA [None]
  - DRUG INEFFECTIVE [None]
  - LUNG INFECTION [None]
  - PAIN [None]
  - DRUG DOSE OMISSION [None]
